FAERS Safety Report 9160679 (Version 2)
Quarter: 2013Q2

REPORT INFORMATION
  Report Type: Report from Study
  Country: JP (occurrence: JP)
  Receive Date: 20130313
  Receipt Date: 20130612
  Transmission Date: 20140414
  Serious: Yes (Hospitalization)
  Sender: FDA-Public Use
  Company Number: JP-JNJFOC-20130305510

PATIENT
  Age: 80 Year
  Sex: Female
  Weight: 55 kg

DRUGS (11)
  1. SIMPONI [Suspect]
     Indication: RHEUMATOID ARTHRITIS
     Route: 058
     Dates: start: 20121227
  2. SIMPONI [Suspect]
     Indication: RHEUMATOID ARTHRITIS
     Route: 058
     Dates: start: 20120816
  3. SIMPONI [Suspect]
     Indication: RHEUMATOID ARTHRITIS
     Route: 058
     Dates: start: 20120706
  4. METHOTREXATE [Concomitant]
     Indication: RHEUMATOID ARTHRITIS
     Dates: start: 20120706
  5. PREDOHAN [Concomitant]
     Indication: RHEUMATOID ARTHRITIS
     Route: 048
  6. PREDNISOLONE [Concomitant]
     Indication: RHEUMATOID ARTHRITIS
     Route: 048
  7. MOHRUS TAPE [Concomitant]
     Indication: OSTEOARTHRITIS
     Route: 062
  8. PARIET [Concomitant]
     Indication: GASTROOESOPHAGEAL REFLUX DISEASE
     Route: 048
  9. CADUET [Concomitant]
     Indication: HYPERTENSION
     Route: 048
  10. PURSENNID [Concomitant]
     Indication: CONSTIPATION
     Route: 048
  11. FOSAMAC [Concomitant]
     Indication: OSTEOPOROSIS
     Route: 048

REACTIONS (1)
  - Rectal cancer [Recovered/Resolved]
